FAERS Safety Report 20438994 (Version 1)
Quarter: 2022Q1

REPORT INFORMATION
  Report Type: Report from Study
  Country: US (occurrence: US)
  Receive Date: 20220207
  Receipt Date: 20220207
  Transmission Date: 20220423
  Serious: Yes (Hospitalization, Other)
  Sender: FDA-Public Use
  Company Number: US-SHIRE-US201916207

PATIENT
  Age: 44 Year
  Sex: Female
  Weight: 40.363 kg

DRUGS (12)
  1. TEDUGLUTIDE [Suspect]
     Active Substance: TEDUGLUTIDE
     Indication: Short-bowel syndrome
     Dosage: 5 MILLIGRAM (TED DAILY DOSE 0.05 MG/KG), 7 DOSES PER WEEK
     Route: 065
     Dates: start: 20150101
  2. TEDUGLUTIDE [Suspect]
     Active Substance: TEDUGLUTIDE
     Indication: Short-bowel syndrome
     Dosage: 5 MILLIGRAM (TED DAILY DOSE 0.05 MG/KG), 7 DOSES PER WEEK
     Route: 065
     Dates: start: 20150101
  3. TEDUGLUTIDE [Suspect]
     Active Substance: TEDUGLUTIDE
     Indication: Short-bowel syndrome
     Dosage: 5 MILLIGRAM (TED DAILY DOSE 0.05 MG/KG), 7 DOSES PER WEEK
     Route: 065
     Dates: start: 20150101
  4. TEDUGLUTIDE [Suspect]
     Active Substance: TEDUGLUTIDE
     Indication: Short-bowel syndrome
     Dosage: 5 MILLIGRAM (TED DAILY DOSE 0.05 MG/KG), 7 DOSES PER WEEK
     Route: 065
     Dates: start: 20150101
  5. TEDUGLUTIDE [Suspect]
     Active Substance: TEDUGLUTIDE
     Dosage: 5 MILLIGRAM, QD
     Route: 065
     Dates: start: 201501, end: 20190412
  6. TEDUGLUTIDE [Suspect]
     Active Substance: TEDUGLUTIDE
     Dosage: 5 MILLIGRAM, QD
     Route: 065
     Dates: start: 201501, end: 20190412
  7. TEDUGLUTIDE [Suspect]
     Active Substance: TEDUGLUTIDE
     Dosage: 5 MILLIGRAM, QD
     Route: 065
     Dates: start: 201501, end: 20190412
  8. TEDUGLUTIDE [Suspect]
     Active Substance: TEDUGLUTIDE
     Dosage: 5 MILLIGRAM, QD
     Route: 065
     Dates: start: 201501, end: 20190412
  9. SODIUM CHLORIDE [Concomitant]
     Active Substance: SODIUM CHLORIDE
     Indication: Electrolyte imbalance
     Dosage: 500 MILLIGRAM, QD
     Route: 042
     Dates: start: 20190306, end: 20190306
  10. KETOROLAC [Concomitant]
     Active Substance: KETOROLAC TROMETHAMINE
     Indication: Electrolyte imbalance
     Dosage: 30 MILLIGRAM, QD
     Route: 042
     Dates: start: 20190306, end: 20190306
  11. TYLENOL WITH CODEINE [Concomitant]
     Active Substance: ACETAMINOPHEN\CODEINE PHOSPHATE
     Indication: Product used for unknown indication
  12. MORPHINE [Concomitant]
     Active Substance: MORPHINE
     Indication: Pain prophylaxis

REACTIONS (5)
  - Malnutrition [Recovered/Resolved]
  - Vascular device infection [Recovered/Resolved]
  - Cellulitis [Recovered/Resolved]
  - Deep vein thrombosis [Not Recovered/Not Resolved]
  - Electrolyte imbalance [Recovered/Resolved]

NARRATIVE: CASE EVENT DATE: 20190306
